FAERS Safety Report 9065565 (Version 1)
Quarter: 2013Q1

REPORT INFORMATION
  Report Type: Spontaneous
  Country: US (occurrence: US)
  Receive Date: 20130131
  Receipt Date: 20130131
  Transmission Date: 20140127
  Serious: No
  Sender: FDA-Public Use
  Company Number: US-ABBOTT-12P-163-1017962-00

PATIENT
  Age: 66 Year
  Sex: Female

DRUGS (8)
  1. HUMIRA [Suspect]
     Indication: CROHN^S DISEASE
     Dates: start: 20121103
  2. LASIX [Concomitant]
     Indication: OEDEMA
     Dosage: DAILY
  3. PLAVIX [Concomitant]
     Indication: CARDIOVASCULAR EVENT PROPHYLAXIS
  4. METOPROLOL TARTRATE [Concomitant]
     Indication: BLOOD PRESSURE
  5. RANEXA [Concomitant]
     Indication: ANGINA PECTORIS
  6. PRAVASTATIN [Concomitant]
     Indication: BLOOD CHOLESTEROL
     Dosage: AT HOUR OF SLEEP
  7. ASA [Concomitant]
     Indication: PRODUCT USED FOR UNKNOWN INDICATION
     Dosage: DAILY
  8. CENTRUM A TO ZINC [Concomitant]
     Indication: PRODUCT USED FOR UNKNOWN INDICATION
     Dosage: DAILY

REACTIONS (2)
  - Incorrect dose administered [Unknown]
  - Injection site bruising [Unknown]
